FAERS Safety Report 8453867 (Version 5)
Quarter: 2021Q3

REPORT INFORMATION
  Report Type: Report from Study
  Country: BO (occurrence: BO)
  Receive Date: 20120312
  Receipt Date: 20210927
  Transmission Date: 20211014
  Serious: Yes (Other)
  Sender: FDA-Public Use
  Company Number: PHHY2012BO019900

PATIENT
  Sex: Female

DRUGS (2)
  1. GLIVEC [Suspect]
     Active Substance: IMATINIB MESYLATE
     Dosage: 300 MG
     Route: 065
  2. GLIVEC [Suspect]
     Active Substance: IMATINIB MESYLATE
     Indication: CHRONIC MYELOID LEUKAEMIA
     Dosage: 400 MG, DAILY (3 TABLET 100 MG)
     Route: 048
     Dates: start: 201104

REACTIONS (9)
  - Arthritis [Unknown]
  - Herpes zoster [Unknown]
  - Feeling abnormal [Unknown]
  - Asthma [Unknown]
  - Osteoarthritis [Unknown]
  - Eye swelling [Unknown]
  - Spinal compression fracture [Unknown]
  - Drug intolerance [Unknown]
  - Headache [Unknown]
